FAERS Safety Report 7548055-X (Version None)
Quarter: 2011Q2

REPORT INFORMATION
  Report Type: 
  Country: None (occurrence: None)
  Receive Date: 20110524
  Receipt Date: 20110224
  Transmission Date: 20111010
  Serious: No
  Sender: FDA-Public Use
  Company Number: 028240

PATIENT
  Sex: Female
  Weight: 68.5 kg

DRUGS (4)
  1. PREDNISONE [Concomitant]
  2. CIMZIA [Suspect]
     Indication: RHEUMATOID ARTHRITIS
     Dosage: 1 SHOT SUBCUTANEOUS
     Route: 058
     Dates: start: 20110102, end: 20110323
  3. SYNTHROID [Concomitant]
  4. ABREVA [Concomitant]

REACTIONS (4)
  - RASH GENERALISED [None]
  - RASH PRURITIC [None]
  - EYE SWELLING [None]
  - PHOTOPHOBIA [None]
